FAERS Safety Report 5316283-X (Version None)
Quarter: 2007Q2

REPORT INFORMATION
  Report Type: 
  Country: None (occurrence: None)
  Receive Date: 20070427
  Receipt Date: 20070413
  Transmission Date: 20071010
  Serious: Yes (Death, Hospitalization)
  Sender: FDA-Public Use
  Company Number: 2007000247

PATIENT
  Age: 74 Year
  Sex: Male
  Weight: 65.8 kg

DRUGS (24)
  1. ERLOTINIB (TABLET) [Suspect]
     Indication: NON-SMALL CELL LUNG CANCER
     Dosage: 150 MG (QD), ORAL
     Route: 048
     Dates: start: 20060615, end: 20070131
  2. BEVACIZUMAB OR PLACEBO (INJECTION FOR INFUSION) [Suspect]
     Indication: NON-SMALL CELL LUNG CANCER
     Dosage: 1016 MG (Q3W), INTRAVENOUS
     Route: 042
     Dates: start: 20060615, end: 20070118
  3. BEVACIZUMAB OR PLACEBO (INJECTION FOR INFUSION) [Suspect]
     Indication: NON-SMALL CELL LUNG CANCER
     Dosage: 1016 MG (Q3W), INTRAVENOUS
     Route: 042
     Dates: start: 20060615, end: 20070118
  4. BEVACIZUMAB OR PLACEBO (INJECTION FOR INFUSION) [Suspect]
     Indication: NON-SMALL CELL LUNG CANCER
     Dosage: 1016 MG (Q3W), INTRAVENOUS
     Route: 042
     Dates: start: 20060615, end: 20070118
  5. NEXIUM [Concomitant]
  6. PLAVIX [Concomitant]
  7. LORAZEPAM [Concomitant]
  8. CARAFATE [Concomitant]
  9. LABETALOL HCL [Concomitant]
  10. LEVAQUIN [Concomitant]
  11. ADVAIR (FLUTICASONE PROPIONATE) [Concomitant]
  12. ROBITUSSIN AC (CHERACOL) [Concomitant]
  13. CAPITAL WITH CODEINE [Concomitant]
  14. MEDROL [Concomitant]
  15. PANTOPRAZOLE SODIUM [Concomitant]
  16. HYDROMORPHONE HCL [Concomitant]
  17. CHLORHEXIDINE (CHLORHEXIDINE) [Concomitant]
  18. DIGOXIN [Concomitant]
  19. AUGMENTIN '125' [Concomitant]
  20. FLUCONAZOLE [Concomitant]
  21. ACYCLOVIR [Concomitant]
  22. METOCLOPRAMIDE [Concomitant]
  23. ENALAPRILAT (ENALAPRILAT) [Concomitant]
  24. HYDRALAZINE HCL [Concomitant]

REACTIONS (16)
  - BACTERIAL TRACHEITIS [None]
  - BRONCHITIS [None]
  - FLUID INTAKE REDUCED [None]
  - GENERAL PHYSICAL HEALTH DETERIORATION [None]
  - LACERATION [None]
  - LUNG CONSOLIDATION [None]
  - LUNG INFILTRATION [None]
  - NO THERAPEUTIC RESPONSE [None]
  - PAIN [None]
  - PLEURAL EFFUSION [None]
  - PNEUMONIA [None]
  - RESPIRATORY ARREST [None]
  - TRACHEAL INJURY [None]
  - TRACHEITIS [None]
  - UPPER AIRWAY NECROSIS [None]
  - VIRAL TRACHEITIS [None]
